FAERS Safety Report 13430018 (Version 1)
Quarter: 2017Q2

REPORT INFORMATION
  Report Type: Spontaneous
  Country: US (occurrence: US)
  Receive Date: 20170411
  Receipt Date: 20170411
  Transmission Date: 20170830
  Serious: Yes (Life-Threatening, Hospitalization, Disabling, Other)
  Sender: FDA-Public Use
  Company Number: None

PATIENT
  Age: 55 Year
  Sex: Female
  Weight: 78.75 kg

DRUGS (1)
  1. DOXYCYCLINE. [Suspect]
     Active Substance: DOXYCYCLINE
     Indication: ROSACEA
     Dosage: ?          QUANTITY:1 CAPSULE(S);?
     Route: 048

REACTIONS (7)
  - Sepsis [None]
  - Tooth discolouration [None]
  - Vulvovaginal mycotic infection [None]
  - Sinus disorder [None]
  - Gastric ulcer [None]
  - Tooth infection [None]
  - Tooth loss [None]

NARRATIVE: CASE EVENT DATE: 20150921
